FAERS Safety Report 7678678-9 (Version None)
Quarter: 2011Q3

REPORT INFORMATION
  Report Type: 
  Country: None (occurrence: None)
  Receive Date: 20110811
  Receipt Date: 20110802
  Transmission Date: 20111222
  Serious: Yes (Hospitalization)
  Sender: FDA-Public Use
  Company Number: FR-ASTRAZENECA-2011SE41855

PATIENT
  Age: 88 Year
  Sex: Female

DRUGS (6)
  1. ESCITALOPRAM OXALATE [Suspect]
     Route: 048
     Dates: end: 20100208
  2. CANDESARTAN CILEXETIL AND HYDROCHLOROTHIAZIDE [Suspect]
     Dosage: 8 + 12.5 MG DAILY
     Route: 048
     Dates: end: 20100208
  3. OXAZEPAM [Concomitant]
     Route: 048
  4. POTASSIUM CHLORIDE [Concomitant]
     Route: 048
  5. ASPIRIN [Suspect]
     Route: 048
     Dates: end: 20100208
  6. TENORDATE [Concomitant]
     Route: 048

REACTIONS (3)
  - HYPONATRAEMIA [None]
  - CONFUSIONAL STATE [None]
  - CEREBRAL HAEMATOMA [None]
